FAERS Safety Report 9173332 (Version 1)
Quarter: 2013Q1

REPORT INFORMATION
  Report Type: Spontaneous
  Country: TR (occurrence: None)
  Receive Date: 20130315
  Receipt Date: 20130315
  Transmission Date: 20140127
  Serious: Yes (Life-Threatening, Hospitalization, Other)
  Sender: FDA-Public Use
  Company Number: 2013P1003098

PATIENT
  Age: 18 Year
  Sex: 0

DRUGS (2)
  1. CAPTOPRIL [Suspect]
     Indication: SUICIDE ATTEMPT
     Route: 048
  2. PROPAFENONE [Suspect]
     Indication: SUICIDE ATTEMPT

REACTIONS (9)
  - Suicide attempt [None]
  - Loss of consciousness [None]
  - Respiratory arrest [None]
  - Ventricular arrhythmia [None]
  - Electrocardiogram QRS complex prolonged [None]
  - Cardiac arrest [None]
  - Haemodynamic instability [None]
  - Incorrect dose administered [None]
  - Toxicity to various agents [None]
